FAERS Safety Report 5124785-4 (Version None)
Quarter: 2006Q4

REPORT INFORMATION
  Report Type: 
  Country: None (occurrence: None)
  Receive Date: 20061011
  Receipt Date: 20061002
  Transmission Date: 20070319
  Serious: Yes (Hospitalization)
  Sender: FDA-Public Use
  Company Number: 2006CG01603

PATIENT
  Age: 58 Year
  Sex: Female

DRUGS (4)
  1. OMEPRAZOLE [Suspect]
     Route: 048
     Dates: start: 20060803, end: 20060818
  2. BI-PROFENID [Suspect]
     Route: 048
     Dates: start: 20060803, end: 20060818
  3. LEVOTHYROXINE SODIUM [Concomitant]
  4. NOCTAMIDE [Concomitant]

REACTIONS (1)
  - VESTIBULAR NEURONITIS [None]
